FAERS Safety Report 21134011 (Version 1)
Quarter: 2022Q3

REPORT INFORMATION
  Report Type: Spontaneous
  Country: DE (occurrence: DE)
  Receive Date: 20220726
  Receipt Date: 20220726
  Transmission Date: 20221026
  Serious: Yes (Other)
  Sender: FDA-Public Use
  Company Number: None

PATIENT
  Age: 42 Year
  Sex: Female
  Weight: 60 kg

DRUGS (1)
  1. OLUMIANT [Suspect]
     Active Substance: BARICITINIB
     Indication: Dermatitis atopic
     Dosage: 4MG/DIE
     Route: 048
     Dates: start: 20210501, end: 20220713

REACTIONS (1)
  - Squamous cell carcinoma of head and neck [Recovered/Resolved]

NARRATIVE: CASE EVENT DATE: 20220601
